FAERS Safety Report 6429625-9 (Version None)
Quarter: 2009Q4

REPORT INFORMATION
  Report Type: 
  Country: None (occurrence: None)
  Receive Date: 20091103
  Receipt Date: 20091019
  Transmission Date: 20100525
  Serious: Yes (Hospitalization)
  Sender: FDA-Public Use
  Company Number: 02100-JPN-06-0159

PATIENT
  Age: 45 Year
  Sex: Male
  Weight: 73 kg

DRUGS (6)
  1. PLETAL [Suspect]
     Indication: CEREBRAL INFARCTION
     Dosage: 81 MG, QD, ORAL
     Route: 048
     Dates: start: 20050913, end: 20060328
  2. PLETAL [Suspect]
     Indication: CEREBRAL INFARCTION
     Dosage: 81 MG, QD, ORAL
     Route: 048
     Dates: start: 20060425, end: 20060523
  3. CONIEL (BENIDIPINE HYDROCHLORIDE) TABLET [Concomitant]
  4. LIPITOR [Concomitant]
  5. BLOPRESS (CANDESARTAN CILEXETIL) TABLET [Concomitant]
  6. ALLOPURINOL [Concomitant]

REACTIONS (1)
  - GASTRIC ULCER HAEMORRHAGE [None]
